FAERS Safety Report 7665106-2 (Version None)
Quarter: 2011Q3

REPORT INFORMATION
  Report Type: 
  Country: None (occurrence: None)
  Receive Date: 20110806
  Receipt Date: 20110502
  Transmission Date: 20111222
  Serious: No
  Sender: FDA-Public Use
  Company Number: US-ABBOTT-11P-163-0722815-00

PATIENT
  Sex: Female
  Weight: 90.8 kg

DRUGS (12)
  1. LOPRESSOR [Concomitant]
     Indication: HYPERTENSION
  2. FENOFIBRATE [Concomitant]
     Indication: PRODUCT USED FOR UNKNOWN INDICATION
  3. NIASPAN [Suspect]
     Indication: BLOOD CHOLESTEROL
  4. NIASPAN [Suspect]
     Indication: BLOOD CHOLESTEROL
     Dates: start: 20110426
  5. CARAFATE [Concomitant]
     Indication: GASTRITIS
  6. AMARYL [Concomitant]
     Indication: DIABETES MELLITUS
  7. M.V.I. [Concomitant]
     Indication: PRODUCT USED FOR UNKNOWN INDICATION
  8. OMEGA 3 /MEGA RED [Concomitant]
     Indication: PRODUCT USED FOR UNKNOWN INDICATION
  9. INSULIN [Concomitant]
     Indication: PRODUCT USED FOR UNKNOWN INDICATION
  10. VIT D [Concomitant]
     Indication: PRODUCT USED FOR UNKNOWN INDICATION
  11. NIASPAN [Suspect]
  12. OMEPRAZOLE [Concomitant]
     Indication: PRODUCT USED FOR UNKNOWN INDICATION

REACTIONS (4)
  - FEELING HOT [None]
  - FLUSHING [None]
  - RASH [None]
  - PRURITUS [None]
